FAERS Safety Report 9078927 (Version 1)
Quarter: 2013Q1

REPORT INFORMATION
  Report Type: Spontaneous
  Country: US (occurrence: US)
  Receive Date: 20130130
  Receipt Date: 20130130
  Transmission Date: 20140127
  Serious: No
  Sender: FDA-Public Use
  Company Number: US-ABBOTT-12P-163-0958598-00

PATIENT
  Age: 64 None
  Sex: Female
  Weight: 60.84 kg

DRUGS (7)
  1. HUMIRA 40 MG/0.8 ML PEN [Suspect]
     Indication: PSORIATIC ARTHROPATHY
     Dates: start: 2005, end: 2007
  2. HUMIRA 40 MG/0.8 ML PEN [Suspect]
     Indication: PSORIASIS
     Dates: start: 2007, end: 2008
  3. HUMIRA 40 MG/0.8 ML PEN [Suspect]
     Dates: start: 2008
  4. METHOTREXATE [Concomitant]
     Indication: PSORIATIC ARTHROPATHY
  5. METHOTREXATE [Concomitant]
     Indication: PSORIASIS
  6. AMITRIPTYLINE [Concomitant]
     Indication: DEPRESSION
  7. METHADONE [Concomitant]
     Indication: PAIN
     Dosage: UP TO 4 TIMES PER DAY

REACTIONS (5)
  - Inflammation [Not Recovered/Not Resolved]
  - Intervertebral disc space narrowing [Not Recovered/Not Resolved]
  - Arthralgia [Not Recovered/Not Resolved]
  - Arthralgia [Not Recovered/Not Resolved]
  - Local swelling [Not Recovered/Not Resolved]
